FAERS Safety Report 9556340 (Version 1)
Quarter: 2013Q3

REPORT INFORMATION
  Report Type: Spontaneous
  Country: CN (occurrence: CN)
  Receive Date: 20130926
  Receipt Date: 20130926
  Transmission Date: 20140515
  Serious: Yes (Hospitalization, Other)
  Sender: FDA-Public Use
  Company Number: CN-ROXANE LABORATORIES, INC.-2013-RO-01560RO

PATIENT
  Age: 54 Year
  Sex: Female

DRUGS (5)
  1. PREDNISONE [Suspect]
     Indication: RENAL TRANSPLANT
     Dosage: 10 MG
  2. MYCOPHENOLATE MOFETIL [Suspect]
     Indication: RENAL TRANSPLANT
     Dosage: 1000 MG
  3. TACROLIMUS [Suspect]
     Indication: RENAL TRANSPLANT
     Dosage: 6 MG
  4. FK-506 [Suspect]
     Indication: RENAL TRANSPLANT
     Dosage: 3 MG
  5. MEPREDNISONE [Suspect]
     Indication: RENAL TRANSPLANT
     Dosage: 5 MG

REACTIONS (3)
  - Anal squamous cell carcinoma [Recovered/Resolved]
  - Bronchiectasis [Recovered/Resolved]
  - Bronchopulmonary aspergillosis [Recovered/Resolved]
